FAERS Safety Report 4813465-8 (Version None)
Quarter: 2005Q4

REPORT INFORMATION
  Report Type: 
  Country: None (occurrence: None)
  Receive Date: 20051028
  Receipt Date: 20050211
  Transmission Date: 20060501
  Serious: No
  Sender: FDA-Public Use
  Company Number: US-GLAXOSMITHKLINE-A0545534A

PATIENT
  Age: 44 Year
  Sex: Female

DRUGS (1)
  1. ADVAIR DISKUS 100/50 [Suspect]
     Indication: BRONCHITIS
     Dosage: 1PUFF TWICE PER DAY
     Route: 055
     Dates: start: 20050208, end: 20050210

REACTIONS (8)
  - COUGH [None]
  - DRY MOUTH [None]
  - DYSPNOEA [None]
  - NASAL CONGESTION [None]
  - PHARYNGEAL HYPOAESTHESIA [None]
  - PHARYNGEAL OEDEMA [None]
  - SNEEZING [None]
  - THROAT IRRITATION [None]
